FAERS Safety Report 23895277 (Version 1)
Quarter: 2024Q2

REPORT INFORMATION
  Report Type: Spontaneous
  Country: PR (occurrence: PR)
  Receive Date: 20240524
  Receipt Date: 20240524
  Transmission Date: 20240716
  Serious: No
  Sender: FDA-Public Use
  Company Number: PR-BRISTOL-MYERS SQUIBB COMPANY-2024-081529

PATIENT
  Age: 63 Year
  Sex: Male
  Weight: 77.11 kg

DRUGS (5)
  1. REVLIMID [Suspect]
     Active Substance: LENALIDOMIDE
     Indication: Plasma cell myeloma
     Route: 048
     Dates: start: 202312
  2. DARZALEX [Concomitant]
     Active Substance: DARATUMUMAB
     Indication: Product used for unknown indication
     Route: 042
  3. VELCADE [Concomitant]
     Active Substance: BORTEZOMIB
     Indication: Product used for unknown indication
  4. XGEVA [Concomitant]
     Active Substance: DENOSUMAB
     Indication: Product used for unknown indication
  5. DEXAMETHASONE [Concomitant]
     Active Substance: DEXAMETHASONE
     Indication: Product used for unknown indication

REACTIONS (1)
  - Light chain analysis increased [Not Recovered/Not Resolved]
